FAERS Safety Report 9610829 (Version 2)
Quarter: 2013Q4

REPORT INFORMATION
  Report Type: Spontaneous
  Country: JP (occurrence: JP)
  Receive Date: 20131009
  Receipt Date: 20131009
  Transmission Date: 20140711
  Serious: Yes (Other)
  Sender: FDA-Public Use
  Company Number: PHHY2013JP098522

PATIENT
  Age: 63 Year
  Sex: Male

DRUGS (3)
  1. CERTICAN [Suspect]
     Indication: RENAL TRANSPLANT
     Dosage: 3 MG, DAILY
     Route: 048
     Dates: start: 20130220, end: 20130306
  2. CERTICAN [Suspect]
     Dosage: 2 MG, DAILY
     Route: 048
     Dates: start: 20130311, end: 20130323
  3. CELLCEPT [Concomitant]
     Indication: RENAL TRANSPLANT
     Dosage: UNK
     Route: 048

REACTIONS (2)
  - Urticaria [Recovering/Resolving]
  - Protein urine present [Recovering/Resolving]
